FAERS Safety Report 8205935 (Version 3)
Quarter: 2014Q1

REPORT INFORMATION
  Report Type: Spontaneous
  Country: US (occurrence: US)
  Receive Date: 20111028
  Receipt Date: 20140303
  Transmission Date: 20141002
  Serious: Yes (Other)
  Sender: FDA-Public Use
  Company Number: US-ELI_LILLY_AND_COMPANY-US201110004679

PATIENT
  Sex: Female

DRUGS (7)
  1. ZYPREXA [Suspect]
     Indication: BIPOLAR DISORDER
     Dosage: 30 MG, UNKNOWN
     Route: 065
  2. ZYPREXA [Suspect]
     Dosage: 20 MG, UNKNOWN
     Route: 065
  3. ZYPREXA [Suspect]
     Dosage: 15 MG, UNKNOWN
     Route: 065
  4. ZYPREXA [Suspect]
     Dosage: 10 MG, UNKNOWN
     Route: 065
  5. ZYPREXA [Suspect]
     Dosage: 5 MG, UNKNOWN
     Route: 048
     Dates: start: 1998
  6. ZYPREXA [Suspect]
     Dosage: 2.5 MG, UNKNOWN
     Route: 065
  7. XANAX [Concomitant]

REACTIONS (6)
  - Breast cancer [Unknown]
  - Pyrexia [Not Recovered/Not Resolved]
  - Asthenia [Unknown]
  - Fatigue [Unknown]
  - Feeling hot [Not Recovered/Not Resolved]
  - Dehydration [Unknown]
